FAERS Safety Report 17610564 (Version 1)
Quarter: 2020Q2

REPORT INFORMATION
  Report Type: Spontaneous
  Country: US (occurrence: US)
  Receive Date: 20200401
  Receipt Date: 20200401
  Transmission Date: 20200713
  Serious: Yes (Other)
  Sender: FDA-Public Use
  Company Number: US-MYLANLABS-2020M1033113

PATIENT
  Sex: Female

DRUGS (1)
  1. GLATIRAMER [Suspect]
     Active Substance: GLATIRAMER
     Indication: PRODUCT USED FOR UNKNOWN INDICATION

REACTIONS (8)
  - Hypoaesthesia [Unknown]
  - Dysphagia [Unknown]
  - Cognitive disorder [Unknown]
  - Balance disorder [Unknown]
  - Blindness [Unknown]
  - Psoriasis [Unknown]
  - Fall [Unknown]
  - Speech disorder [Unknown]
